FAERS Safety Report 9088555 (Version 1)
Quarter: 2013Q1

REPORT INFORMATION
  Report Type: Report from Study
  Country: US (occurrence: US)
  Receive Date: 20130131
  Receipt Date: 20130131
  Transmission Date: 20140127
  Serious: No
  Sender: FDA-Public Use
  Company Number: US-ABBOTT-12P-163-0992542-00

PATIENT
  Age: 37 Year
  Sex: Female

DRUGS (2)
  1. HUMIRA [Suspect]
     Indication: CROHN^S DISEASE
     Dosage: 4 PENS DAY ZERO
     Route: 058
     Dates: start: 20121004, end: 20121004
  2. HUMIRA [Suspect]
     Dosage: 2 PENS WEEK TWO
     Route: 058

REACTIONS (1)
  - Injection site swelling [Unknown]
